FAERS Safety Report 5065156-9 (Version None)
Quarter: 2006Q3

REPORT INFORMATION
  Report Type: 
  Country: None (occurrence: None)
  Receive Date: 20060725
  Receipt Date: 20060725
  Transmission Date: 20061208
  Serious: Yes (Life-Threatening)
  Sender: FDA-Public Use
  Company Number: 2006ADE/DICLO-014

PATIENT
  Age: 52 Year
  Sex: Female

DRUGS (2)
  1. DICLOFENAC [Suspect]
     Indication: ARTHRALGIA
     Dosage: ORAL
     Route: 048
  2. PENICILLIN (PENICILLINS WITH EXTENDED SPECTRUM) [Suspect]
     Dosage: ORAL
     Route: 048

REACTIONS (6)
  - ACUTE GENERALISED EXANTHEMATOUS PUSTULOSIS [None]
  - ALANINE AMINOTRANSFERASE INCREASED [None]
  - ASPARTATE AMINOTRANSFERASE INCREASED [None]
  - GAMMA-GLUTAMYLTRANSFERASE INCREASED [None]
  - LEUKOCYTOSIS [None]
  - SKIN DISORDER [None]
